FAERS Safety Report 10341070 (Version 2)
Quarter: 2014Q3

REPORT INFORMATION
  Report Type: Spontaneous
  Country: US (occurrence: US)
  Receive Date: 20140724
  Receipt Date: 20140724
  Transmission Date: 20150326
  Serious: Yes (Other)
  Sender: FDA-Public Use
  Company Number: US-MYLANLABS-2014S1002154

PATIENT
  Age: 73 Year
  Sex: Female
  Weight: 80.83 kg

DRUGS (3)
  1. LEVOTHYROXINE SODIUM TABLETS, USP [Suspect]
     Active Substance: LEVOTHYROXINE SODIUM
     Indication: HYPOTHYROIDISM
     Route: 048
     Dates: start: 20130521
  2. AFLIBERCEPT [Concomitant]
     Active Substance: AFLIBERCEPT
     Dosage: WHEN DIRECTED BY OPTHALMOLOGY
     Route: 031
  3. EXTENDED PHENYTOIN SODIUM [Concomitant]
     Active Substance: PHENYTOIN SODIUM
     Indication: COMPLEX PARTIAL SEIZURES
     Route: 048

REACTIONS (2)
  - Complex partial seizures [Not Recovered/Not Resolved]
  - Alopecia [Recovered/Resolved]

NARRATIVE: CASE EVENT DATE: 201307
